FAERS Safety Report 7491413-2 (Version None)
Quarter: 2011Q2

REPORT INFORMATION
  Report Type: 
  Country: None (occurrence: None)
  Receive Date: 20110519
  Receipt Date: 20110505
  Transmission Date: 20111010
  Serious: Yes (Other)
  Sender: FDA-Public Use
  Company Number: PHHY2011ES39517

PATIENT

DRUGS (1)
  1. LETROZOLE [Suspect]
     Indication: BREAST CANCER
     Dosage: UNK

REACTIONS (6)
  - COLON ADENOMA [None]
  - WEIGHT DECREASED [None]
  - COLONIC POLYP [None]
  - DIARRHOEA [None]
  - EOSINOPHILIC COLITIS [None]
  - HIATUS HERNIA [None]
